FAERS Safety Report 6969882-3 (Version None)
Quarter: 2010Q3

REPORT INFORMATION
  Report Type: 
  Country: None (occurrence: None)
  Receive Date: 20100908
  Receipt Date: 20100825
  Transmission Date: 20110219
  Serious: Yes (Life-Threatening, Hospitalization)
  Sender: FDA-Public Use
  Company Number: DE-RANBAXY-2009RR-22347

PATIENT
  Age: 74 Year
  Sex: Male
  Weight: 125 kg

DRUGS (13)
  1. ENALAPRIL [Suspect]
     Indication: RENAL FAILURE
     Dosage: 5 MG, BID
     Route: 048
     Dates: start: 20080101, end: 20080926
  2. BISOPROLOL FUMARATE [Suspect]
     Indication: HYPERTENSION
     Dosage: 5 MG, QD
     Route: 048
     Dates: start: 20050101, end: 20080927
  3. ACTRAPHANE HM [Suspect]
     Indication: TYPE 2 DIABETES MELLITUS
     Dosage: 45 IU, BID
     Route: 058
     Dates: start: 20050101, end: 20080921
  4. ACTRAPHANE HM [Suspect]
     Dosage: 60 IU, UNK
     Dates: start: 20080801
  5. ALLOPURINOL [Concomitant]
     Indication: HYPERURICAEMIA
     Dosage: 300 MG, QD
     Route: 048
     Dates: start: 20050101, end: 20080927
  6. ASPIRIN [Concomitant]
     Dosage: 100 MG, QD
     Route: 048
     Dates: start: 20050101, end: 20080927
  7. FUROSEMIDE [Concomitant]
     Indication: RENAL FAILURE
     Dosage: 20 MG, BID
     Route: 048
     Dates: start: 20050101, end: 20080926
  8. SIMVASTATIN [Concomitant]
     Indication: HYPERLIPIDAEMIA
     Dosage: 20 MG, QD
     Route: 048
     Dates: start: 20050101, end: 20080927
  9. XIPAMIDE [Concomitant]
     Indication: RENAL FAILURE
     Dosage: 20 MG, QD
     Route: 048
     Dates: start: 20050101, end: 20080926
  10. CEFTRIAXONE [Concomitant]
     Dosage: 2 G, QD
     Route: 042
  11. SODIUM BICARBONATE [Concomitant]
     Dosage: UNK
     Dates: start: 20080923
  12. LASIX [Concomitant]
     Dosage: 40 MG, UNK
     Dates: start: 20080923
  13. HALOPERIDOL [Concomitant]

REACTIONS (2)
  - DRUG INTERACTION [None]
  - HYPOGLYCAEMIA [None]
